FAERS Safety Report 5304188-X (Version None)
Quarter: 2007Q2

REPORT INFORMATION
  Report Type: 
  Country: None (occurrence: None)
  Receive Date: 20070423
  Receipt Date: 20070413
  Transmission Date: 20071010
  Serious: Yes (Other)
  Sender: FDA-Public Use
  Company Number: PHBS2007BR05122

PATIENT
  Age: 54 Year
  Sex: Female

DRUGS (5)
  1. AREDIA [Suspect]
     Dosage: 90 MG MONTHLY
     Dates: start: 20010111, end: 20070129
  2. CYCLOPHOSPHAMIDE [Concomitant]
     Dosage: 715 MG, UNK
     Dates: start: 20010113, end: 20011121
  3. FLUOROURACIL [Concomitant]
     Dosage: 715 MG, UNK
     Dates: start: 20010113, end: 20011121
  4. TAMOXIFEN CITRATE [Concomitant]
     Dosage: 20 MG, UNK
     Dates: start: 20020901, end: 20030701
  5. ARIMIDEX [Concomitant]
     Dates: start: 20030813, end: 20060525

REACTIONS (4)
  - BONE DISORDER [None]
  - DENTAL TREATMENT [None]
  - OSTEONECROSIS [None]
  - TOOTH EXTRACTION [None]
